FAERS Safety Report 14046787 (Version 1)
Quarter: 2017Q4

REPORT INFORMATION
  Report Type: Spontaneous
  Country: US (occurrence: US)
  Receive Date: 20171005
  Receipt Date: 20171005
  Transmission Date: 20180321
  Serious: Yes (Hospitalization)
  Sender: FDA-Public Use
  Company Number: US-INDIVIOR LIMITED-INDV-097038-2016

PATIENT
  Age: 62 Year
  Sex: Male

DRUGS (1)
  1. SUBOXONE [Suspect]
     Active Substance: BUPRENORPHINE HYDROCHLORIDE\NALOXONE HYDROCHLORIDE
     Indication: DRUG USE DISORDER
     Dosage: 4 MG DAILY; SOMETIMES TAKES 2 MG IN THE MORNING AND 2 MG IN THE EVENING
     Route: 060
     Dates: start: 2005, end: 20161130

REACTIONS (10)
  - Drug dependence [Unknown]
  - Therapy cessation [Recovered/Resolved]
  - Drug withdrawal syndrome [Unknown]
  - Tendon rupture [Unknown]
  - Hyperhidrosis [Unknown]
  - Pain [Unknown]
  - Cartilage injury [Unknown]
  - Feeling abnormal [Unknown]
  - Yawning [Unknown]
  - Intentional product misuse [Recovered/Resolved]

NARRATIVE: CASE EVENT DATE: 20161130
